FAERS Safety Report 9195492 (Version 2)
Quarter: 2013Q2

REPORT INFORMATION
  Report Type: Spontaneous
  Country: CH (occurrence: CH)
  Receive Date: 20130328
  Receipt Date: 20130429
  Transmission Date: 20140414
  Serious: Yes (Congenital Anomaly)
  Sender: FDA-Public Use
  Company Number: CH-BIOGENIDEC-2013BI026872

PATIENT
  Sex: Male

DRUGS (1)
  1. TYSABRI [Suspect]
     Indication: EXPOSURE VIA FATHER
     Route: 042

REACTIONS (1)
  - Cleft palate [Not Recovered/Not Resolved]
